FAERS Safety Report 5655033-4 (Version None)
Quarter: 2008Q1

REPORT INFORMATION
  Report Type: 
  Country: None (occurrence: None)
  Receive Date: 20080307
  Receipt Date: 20071029
  Transmission Date: 20080703
  Serious: No
  Sender: FDA-Public Use
  Company Number: A0690331A

PATIENT
  Age: 66 Year
  Sex: Female

DRUGS (2)
  1. REQUIP [Suspect]
     Indication: RESTLESS LEGS SYNDROME
     Route: 048
  2. SYNTHROID [Concomitant]

REACTIONS (2)
  - BLOOD PRESSURE DECREASED [None]
  - DIZZINESS [None]
